FAERS Safety Report 16208150 (Version 12)
Quarter: 2019Q3

REPORT INFORMATION
  Report Type: Spontaneous
  Country: US (occurrence: US)
  Receive Date: 20190417
  Receipt Date: 20190924
  Transmission Date: 20191004
  Serious: Yes (Life-Threatening, Hospitalization, Other)
  Sender: FDA-Public Use
  Company Number: US-BAYER-2019-073567

PATIENT
  Age: 37 Year
  Sex: Male
  Weight: 72.56 kg

DRUGS (17)
  1. KOGENATE FS [Suspect]
     Active Substance: ANTIHEMOPHILIC FACTOR, HUMAN RECOMBINANT
     Indication: FACTOR VIII DEFICIENCY
     Dosage: 2000 U, UNK (5 OR 6 DOSES TO TREAT THE TONGUE BLEEDING AND 1 ADDITIONAL DOSE TO TREAT THE LEFT ELBOW
     Route: 042
  2. NORCO [Concomitant]
     Active Substance: ACETAMINOPHEN\HYDROCODONE BITARTRATE
  3. LIDOCAINE. [Concomitant]
     Active Substance: LIDOCAINE
  4. KOGENATE FS [Suspect]
     Active Substance: ANTIHEMOPHILIC FACTOR, HUMAN RECOMBINANT
     Indication: FACTOR VIII DEFICIENCY
     Dosage: 2000 U, PRN FOR BLEEDING
     Route: 042
     Dates: start: 201605
  5. KOGENATE FS [Suspect]
     Active Substance: ANTIHEMOPHILIC FACTOR, HUMAN RECOMBINANT
     Indication: FACTOR VIII DEFICIENCY
     Dosage: 2000 U, PRN
     Route: 042
  6. KOGENATE FS [Suspect]
     Active Substance: ANTIHEMOPHILIC FACTOR, HUMAN RECOMBINANT
     Indication: FACTOR VIII DEFICIENCY
     Dosage: 4 EXTRA DOSES TO TREAT THE SHOULDER BLEED
  7. POTASSIUM [Concomitant]
     Active Substance: POTASSIUM
  8. KOGENATE FS [Suspect]
     Active Substance: ANTIHEMOPHILIC FACTOR, HUMAN RECOMBINANT
     Indication: FACTOR VIII DEFICIENCY
     Dosage: 2000 IU, QOD
  9. KOGENATE FS [Suspect]
     Active Substance: ANTIHEMOPHILIC FACTOR, HUMAN RECOMBINANT
     Indication: FACTOR VIII DEFICIENCY
     Dosage: 2000 U, TIW
     Route: 042
     Dates: start: 201605
  10. KOGENATE FS [Suspect]
     Active Substance: ANTIHEMOPHILIC FACTOR, HUMAN RECOMBINANT
     Indication: FACTOR VIII DEFICIENCY
     Dosage: 1 DF, ONCE (LAST DOSE INFUSED)
     Dates: start: 20190408, end: 20190408
  11. CARVEDILOL. [Concomitant]
     Active Substance: CARVEDILOL
  12. KOGENATE FS [Suspect]
     Active Substance: ANTIHEMOPHILIC FACTOR, HUMAN RECOMBINANT
     Indication: FACTOR VIII DEFICIENCY
     Dosage: AFTER DISCHARGE HE BEGAN INFUSING EVERY 48 HOURS
     Route: 042
     Dates: start: 20190307
  13. DILTIAZEM HCL [Concomitant]
     Active Substance: DILTIAZEM HYDROCHLORIDE
  14. KOGENATE FS [Suspect]
     Active Substance: ANTIHEMOPHILIC FACTOR, HUMAN RECOMBINANT
     Indication: FACTOR VIII DEFICIENCY
     Dosage: 2000 U, TIW
     Route: 042
     Dates: start: 20160513
  15. FUROSEMIDE. [Concomitant]
     Active Substance: FUROSEMIDE
  16. ISOSORBIDE MONONITRATE. [Concomitant]
     Active Substance: ISOSORBIDE MONONITRATE
  17. KOGENATE FS [Suspect]
     Active Substance: ANTIHEMOPHILIC FACTOR, HUMAN RECOMBINANT
     Indication: FACTOR VIII DEFICIENCY
     Dosage: UNK UNK, BID
     Dates: start: 20190624, end: 20190703

REACTIONS (14)
  - Haemorrhage [Not Recovered/Not Resolved]
  - Product dose omission [None]
  - Haemorrhoidal haemorrhage [None]
  - Haemarthrosis [Not Recovered/Not Resolved]
  - Thoracic haemorrhage [Not Recovered/Not Resolved]
  - Pneumonia [Not Recovered/Not Resolved]
  - Recalled product administered [None]
  - Myocardial infarction [Not Recovered/Not Resolved]
  - Tongue haemorrhage [Not Recovered/Not Resolved]
  - Cardio-respiratory arrest [Unknown]
  - Infusion site pain [Not Recovered/Not Resolved]
  - Infusion site scar [Not Recovered/Not Resolved]
  - Haemarthrosis [Not Recovered/Not Resolved]
  - Recalled product [None]

NARRATIVE: CASE EVENT DATE: 2019
